FAERS Safety Report 11421976 (Version 1)
Quarter: 2015Q3

REPORT INFORMATION
  Report Type: Spontaneous
  Country: GB (occurrence: GB)
  Receive Date: 20150827
  Receipt Date: 20150827
  Transmission Date: 20151125
  Serious: Yes (Other)
  Sender: FDA-Public Use
  Company Number: GB-AUROBINDO-AUR-APL-2015-07440

PATIENT
  Age: 35 Year
  Sex: Female
  Weight: 69.85 kg

DRUGS (3)
  1. LANSOPRAZOLE. [Concomitant]
     Active Substance: LANSOPRAZOLE
     Indication: PRODUCT USED FOR UNKNOWN INDICATION
     Dosage: 15 MG, UNK
     Route: 065
  2. COCODAMOL [Concomitant]
     Active Substance: ACETAMINOPHEN\CODEINE PHOSPHATE
     Indication: PRODUCT USED FOR UNKNOWN INDICATION
     Dosage: 15/500
     Route: 065
  3. GABAPENTIN. [Suspect]
     Active Substance: GABAPENTIN
     Indication: MUSCULOSKELETAL PAIN
     Dosage: 1200 MG, UNK
     Route: 002
     Dates: start: 20150804, end: 20150807

REACTIONS (4)
  - Eye irritation [Unknown]
  - Sleep disorder [Recovering/Resolving]
  - Keratitis [Unknown]
  - Corneal disorder [Unknown]

NARRATIVE: CASE EVENT DATE: 20150804
